FAERS Safety Report 7619321-4 (Version None)
Quarter: 2011Q3

REPORT INFORMATION
  Report Type: 
  Country: None (occurrence: None)
  Receive Date: 20110719
  Receipt Date: 20110708
  Transmission Date: 20111222
  Serious: No
  Sender: FDA-Public Use
  Company Number: US-B.I. PHARMACEUTICALS,INC./RIDGEFIELD-2011-BP-17479BP

PATIENT
  Sex: Male

DRUGS (4)
  1. CASODEX [Concomitant]
     Indication: PROSTATE CANCER
  2. PRADAXA [Suspect]
     Indication: ATRIAL FIBRILLATION
     Dosage: 300 MG
     Route: 048
     Dates: start: 20110401
  3. PROSCAR [Concomitant]
     Indication: PROSTATE CANCER
  4. LISINOPRIL [Concomitant]
     Indication: ATRIAL FIBRILLATION

REACTIONS (2)
  - BALANCE DISORDER [None]
  - DIZZINESS [None]
